FAERS Safety Report 5829717-9 (Version None)
Quarter: 2008Q3

REPORT INFORMATION
  Report Type: 
  Country: None (occurrence: None)
  Receive Date: 20080801
  Receipt Date: 20080723
  Transmission Date: 20090109
  Serious: Yes (Hospitalization)
  Sender: FDA-Public Use
  Company Number: US-WYE-H05198108

PATIENT
  Sex: Female
  Weight: 102.15 kg

DRUGS (4)
  1. PRISTIQ [Suspect]
     Indication: DEPRESSION
     Route: 048
     Dates: start: 20080701
  2. PREVACID [Concomitant]
     Dosage: UNKNOWN
  3. VITAMINS WITH MINERALS [Concomitant]
     Dosage: UNKNOWN
  4. KLONOPIN [Concomitant]
     Dosage: UNKNOWN

REACTIONS (1)
  - OEDEMA [None]
